FAERS Safety Report 7428737-0 (Version None)
Quarter: 2011Q2

REPORT INFORMATION
  Report Type: 
  Country: None (occurrence: None)
  Receive Date: 20110421
  Receipt Date: 20110413
  Transmission Date: 20111010
  Serious: Yes (Other)
  Sender: FDA-Public Use
  Company Number: US-PFIZER INC-2011086376

PATIENT
  Age: 50 Year
  Sex: Female

DRUGS (2)
  1. CELEBREX [Suspect]
     Dosage: UNK
  2. CELEBREX [Suspect]
     Dosage: UNK
     Dates: start: 20110413

REACTIONS (1)
  - VAGINAL HAEMORRHAGE [None]
